FAERS Safety Report 15418663 (Version 1)
Quarter: 2018Q3

REPORT INFORMATION
  Report Type: Spontaneous
  Country: US (occurrence: US)
  Receive Date: 20180924
  Receipt Date: 20180924
  Transmission Date: 20181010
  Serious: Yes (Other)
  Sender: FDA-Public Use
  Company Number: US-TORRENT-00006913

PATIENT
  Age: 48 Year
  Sex: Male

DRUGS (1)
  1. ZOLPIDEM [Suspect]
     Active Substance: ZOLPIDEM\ZOLPIDEM TARTRATE
     Indication: PRODUCT USED FOR UNKNOWN INDICATION
     Dosage: UP TO 50 TO 100 MG PER DAY; DAILY USE FOR THE PAST 5 YEARS

REACTIONS (3)
  - Drug abuse [Unknown]
  - Drug tolerance [Unknown]
  - Drug withdrawal convulsions [Unknown]
